FAERS Safety Report 15772360 (Version 2)
Quarter: 2019Q1

REPORT INFORMATION
  Report Type: Report from Study
  Country: US (occurrence: US)
  Receive Date: 20181228
  Receipt Date: 20190109
  Transmission Date: 20190417
  Serious: Yes (Other)
  Sender: FDA-Public Use
  Company Number: US-JNJFOC-20181232989

PATIENT
  Sex: Female

DRUGS (2)
  1. SIMPONI [Suspect]
     Active Substance: GOLIMUMAB
     Indication: ANKYLOSING SPONDYLITIS
     Route: 058
     Dates: start: 2018
  2. SIMPONI [Suspect]
     Active Substance: GOLIMUMAB
     Indication: ANKYLOSING SPONDYLITIS
     Route: 058
     Dates: start: 20181230

REACTIONS (7)
  - Gastrointestinal polyp [Unknown]
  - Fatigue [Recovered/Resolved]
  - Bedridden [Unknown]
  - Uterine haemorrhage [Recovered/Resolved]
  - Gastritis erosive [Unknown]
  - Back pain [Unknown]
  - Abdominal pain [Not Recovered/Not Resolved]
